FAERS Safety Report 6813999-0 (Version None)
Quarter: 2010Q3

REPORT INFORMATION
  Report Type: 
  Country: None (occurrence: None)
  Receive Date: 20100702
  Receipt Date: 20090720
  Transmission Date: 20110219
  Serious: Yes (Other)
  Sender: FDA-Public Use
  Company Number: US-ASTRAZENECA-2007UW04306

PATIENT
  Sex: Female
  Weight: 107 kg

DRUGS (13)
  1. SEROQUEL [Suspect]
     Dosage: 100-400 MG
     Route: 048
     Dates: start: 20040914
  2. ASPIRIN [Concomitant]
     Dates: start: 20060123
  3. ABILIFY [Concomitant]
     Dates: start: 20061110
  4. ACTOS [Concomitant]
     Dates: start: 20061110
  5. ALPRAZOLAM [Concomitant]
     Dosage: ONE TABLET FOUR TIMES DAILY AND TWO AT BEDTIME
     Dates: start: 20061110
  6. AMARYL [Concomitant]
     Dosage: ONE TAB IN THE AM AND ONE IN THE PM
     Dates: start: 20061110
  7. CYMBALTA [Concomitant]
     Dates: start: 20061110
  8. GLUCOPHAGE [Concomitant]
     Dosage: ONE TAB IN THE AM AND ONE IN THE PM WITH MEALS
     Dates: start: 20061110
  9. LEVOTHYROXINE SODIUM [Concomitant]
     Dates: start: 20061110
  10. LITHIUM CARBONATE [Concomitant]
     Dosage: 1 CAPSULE THREE TIMES A DAY
     Dates: start: 20061110
  11. TEMAZEPAM [Concomitant]
     Dosage: THREE AT BEDTIME EVERY NIGHT
     Dates: start: 20061110
  12. ZOLOFT [Concomitant]
     Dosage: TAKE TWO AND ONE-HALF AT BEDTIME100
     Dates: start: 20061110
  13. PYRIDOXINE HCL [Concomitant]
     Dates: start: 20061110

REACTIONS (7)
  - DIABETES MELLITUS INADEQUATE CONTROL [None]
  - DIABETIC GASTROPARESIS [None]
  - DIABETIC KETOACIDOSIS [None]
  - DIABETIC NEUROPATHY [None]
  - NEUROPATHY PERIPHERAL [None]
  - PANCREATITIS [None]
  - TYPE 2 DIABETES MELLITUS [None]
